FAERS Safety Report 14666861 (Version 2)
Quarter: 2019Q1

REPORT INFORMATION
  Report Type: Report from Study
  Country: US (occurrence: US)
  Receive Date: 20180322
  Receipt Date: 20190227
  Transmission Date: 20190417
  Serious: Yes (Other)
  Sender: FDA-Public Use
  Company Number: US-ROCHE-2087964

PATIENT
  Age: 78 Year
  Sex: Male
  Weight: 94.5 kg

DRUGS (25)
  1. LENALIDOMIDE [Suspect]
     Active Substance: LENALIDOMIDE
     Indication: CHRONIC LYMPHOCYTIC LEUKAEMIA
     Dosage: FOR 21 DAYS?MOST RECENT DOSE ON 14/FEB/2019
     Route: 048
     Dates: start: 20180425
  2. FLONASE [Concomitant]
     Active Substance: FLUTICASONE PROPIONATE
     Route: 065
  3. BACTRIM [Concomitant]
     Active Substance: SULFAMETHOXAZOLE\TRIMETHOPRIM
     Dosage: 800-160 MG, 2 TIMES DAILY ON SATURDAY AND SUNDAY
     Route: 048
     Dates: start: 20170923, end: 20180307
  4. ZOVIRAX [Concomitant]
     Active Substance: ACYCLOVIR
     Route: 065
     Dates: start: 20170920, end: 20180303
  5. ELIQUIS [Concomitant]
     Active Substance: APIXABAN
     Route: 048
  6. BENDAMUSTINE [Suspect]
     Active Substance: BENDAMUSTINE
     Indication: CHRONIC LYMPHOCYTIC LEUKAEMIA
     Dosage: MOST RECENT DOSE ON 08/FEB/2018
     Route: 042
     Dates: start: 20170920
  7. VITAMIN D3 [Concomitant]
     Active Substance: CHOLECALCIFEROL
     Dosage: 1000 UNITS
     Route: 048
  8. LASIX [Concomitant]
     Active Substance: FUROSEMIDE
     Indication: PERIPHERAL SWELLING
     Route: 048
     Dates: start: 20170920, end: 20180307
  9. NITROSTAT [Concomitant]
     Active Substance: NITROGLYCERIN
     Indication: CHEST PAIN
     Route: 060
  10. NEULASTA [Concomitant]
     Active Substance: PEGFILGRASTIM
     Dosage: 6 MG/ 0.6 ML SOLN SYRINGE
     Route: 058
     Dates: start: 20170922, end: 20180307
  11. COMPAZINE [Concomitant]
     Active Substance: PROCHLORPERAZINE MALEATE
     Indication: NAUSEA
     Route: 048
     Dates: start: 20170920, end: 20180307
  12. TRIAMCINOLON ACETONID [Concomitant]
     Route: 065
     Dates: start: 20180207
  13. LIPITOR [Concomitant]
     Active Substance: ATORVASTATIN CALCIUM
     Route: 065
     Dates: start: 201603
  14. PLAVIX [Concomitant]
     Active Substance: CLOPIDOGREL BISULFATE
     Route: 048
     Dates: start: 201602
  15. COMPAZINE [Concomitant]
     Active Substance: PROCHLORPERAZINE MALEATE
     Indication: VOMITING
  16. RITUXIMAB. [Suspect]
     Active Substance: RITUXIMAB
     Indication: CHRONIC LYMPHOCYTIC LEUKAEMIA
     Dosage: MOST RECENT DOSE ON 07/FEB/2018
     Route: 042
     Dates: start: 20170921
  17. TOPROL XL [Concomitant]
     Active Substance: METOPROLOL SUCCINATE
     Route: 048
  18. ZOFRAN [Concomitant]
     Active Substance: ONDANSETRON HYDROCHLORIDE
     Indication: NAUSEA
     Route: 048
  19. ZOFRAN [Concomitant]
     Active Substance: ONDANSETRON HYDROCHLORIDE
     Indication: VOMITING
  20. RITUXIMAB. [Suspect]
     Active Substance: RITUXIMAB
     Dosage: MOST RECENT DOSE ON 25/JAN/2019
     Route: 042
     Dates: start: 20180425
  21. DELTASONE [Concomitant]
     Active Substance: PREDNISONE
     Route: 048
     Dates: start: 20170920
  22. ELIQUIS [Concomitant]
     Active Substance: APIXABAN
     Route: 048
     Dates: start: 20170920
  23. EPINEPHRINE. [Concomitant]
     Active Substance: EPINEPHRINE
     Dosage: 0.15MG/0.3ML AND 0.3MG/0.3/MG SOLUNTION AUTO INJECTOR
     Route: 030
     Dates: start: 201606, end: 201802
  24. ATARAX [Concomitant]
     Active Substance: HYDROXYZINE HYDROCHLORIDE
     Dosage: 1-2 TABS EVERY 6 HOURS AS NEEDED
     Route: 048
     Dates: start: 20180223
  25. PROTONIX [Concomitant]
     Active Substance: PANTOPRAZOLE SODIUM
     Route: 048

REACTIONS (2)
  - Squamous cell carcinoma [Unknown]
  - Skin cancer [Unknown]

NARRATIVE: CASE EVENT DATE: 20171130
